FAERS Safety Report 7920513-5 (Version None)
Quarter: 2011Q4

REPORT INFORMATION
  Report Type: 
  Country: None (occurrence: None)
  Receive Date: 20111117
  Receipt Date: 20111110
  Transmission Date: 20120403
  Serious: Yes (Hospitalization)
  Sender: FDA-Public Use
  Company Number: PHHY2011CA95162

PATIENT
  Sex: Female

DRUGS (3)
  1. ZOLEDRONOC ACID [Suspect]
     Indication: OSTEOPOROSIS
     Dosage: 5 MG, ANNUAL
     Route: 042
     Dates: start: 20090101, end: 20110101
  2. CALCIUM [Concomitant]
     Dosage: 500 MG, QD
  3. VITAMIN D [Concomitant]
     Dosage: 2000 IU, QD
     Route: 048

REACTIONS (2)
  - FEMUR FRACTURE [None]
  - ARTHRALGIA [None]
